FAERS Safety Report 4416468-0 (Version None)
Quarter: 2004Q3

REPORT INFORMATION
  Report Type: 
  Country: None (occurrence: None)
  Receive Date: 20040728
  Receipt Date: 20030602
  Transmission Date: 20050211
  Serious: Yes (Hospitalization)
  Sender: FDA-Public Use
  Company Number: 339148

PATIENT
  Age: 53 Year
  Sex: Female

DRUGS (4)
  1. CELLCEPT [Suspect]
     Indication: PANCREAS TRANSPLANT
     Dosage: 1 GRAM 2 PER DAY ORAL
     Route: 048
     Dates: start: 20020515
  2. CELLCEPT [Suspect]
     Indication: PROPHYLAXIS AGAINST TRANSPLANT REJECTION
     Dosage: 1 GRAM 2 PER DAY ORAL
     Route: 048
     Dates: start: 20020515
  3. PROGRAF [Concomitant]
  4. PREDNISONE TAB [Concomitant]

REACTIONS (3)
  - LEUKOPENIA [None]
  - LIPASE INCREASED [None]
  - PANCREAS TRANSPLANT REJECTION [None]
